FAERS Safety Report 8843419 (Version 1)
Quarter: 2012Q4

REPORT INFORMATION
  Report Type: 
  Country: GB (occurrence: GB)
  Receive Date: 20121016
  Receipt Date: 20121016
  Transmission Date: 20130627
  Serious: Yes (Hospitalization)
  Sender: FDA-Public Use
  Company Number: GB-MYLANLABS-2012S1020723

PATIENT
  Age: 89 Year
  Sex: Male
  Weight: 80 kg

DRUGS (1)
  1. OMEPRAZOLE [Suspect]
     Indication: ABDOMINAL PAIN UPPER
     Route: 048
     Dates: start: 20120830, end: 20120918

REACTIONS (9)
  - Tubulointerstitial nephritis [Recovering/Resolving]
  - Renal failure acute [Unknown]
  - Renal aneurysm [Unknown]
  - Decreased appetite [Unknown]
  - Faecal incontinence [Unknown]
  - Lethargy [Unknown]
  - Diarrhoea [Unknown]
  - Chills [Unknown]
  - Abdominal pain upper [Unknown]
